FAERS Safety Report 6453641-4 (Version None)
Quarter: 2009Q4

REPORT INFORMATION
  Report Type: 
  Country: None (occurrence: None)
  Receive Date: 20091124
  Receipt Date: 20091111
  Transmission Date: 20100525
  Serious: Yes (Death, Hospitalization)
  Sender: FDA-Public Use
  Company Number: PHHY2009IT20502

PATIENT
  Age: 50 Year
  Sex: Female

DRUGS (9)
  1. CYCLOSPORINE [Suspect]
     Indication: STEM CELL TRANSPLANT
     Dosage: UNK
  2. CYCLOSPORINE [Suspect]
     Indication: PROPHYLAXIS AGAINST GRAFT VERSUS HOST DISEASE
     Dosage: 3 MG/KG/DAY
     Dates: start: 20060701
  3. METHOTREXATE [Suspect]
     Indication: PROPHYLAXIS AGAINST GRAFT VERSUS HOST DISEASE
     Dosage: UNK
  4. BUSULFAN [Concomitant]
     Dosage: UNK
  5. FLUDARABINE [Concomitant]
     Dosage: UNK
  6. MYCOPHENOLATE MOFETIL [Concomitant]
     Indication: CHRONIC GRAFT VERSUS HOST DISEASE
     Dosage: UNK
  7. PREDNISONE [Concomitant]
     Indication: ACUTE GRAFT VERSUS HOST DISEASE IN INTESTINE
     Dosage: 2 MG/KG/DAY
     Dates: start: 20060701
  8. AMPHOTERICIN B [Concomitant]
     Indication: SINUSITIS
     Dosage: 3 MG/KG/DAY
  9. VORICONAZOLE [Concomitant]
     Indication: ANTIFUNGAL PROPHYLAXIS
     Dosage: 200 MG, Q12H
     Route: 048

REACTIONS (12)
  - ACUTE GRAFT VERSUS HOST DISEASE IN INTESTINE [None]
  - BLINDNESS [None]
  - CAROTID ARTERY THROMBOSIS [None]
  - CEREBRAL ARTERY THROMBOSIS [None]
  - CEREBRAL HAEMORRHAGE [None]
  - CEREBRAL ISCHAEMIA [None]
  - EYELID OEDEMA [None]
  - HEMIPLEGIA [None]
  - RETINAL ISCHAEMIA [None]
  - SEPTIC EMBOLUS [None]
  - SINUSITIS FUNGAL [None]
  - SYSTEMIC MYCOSIS [None]
